FAERS Safety Report 8883746 (Version 2)
Quarter: 2012Q4

REPORT INFORMATION
  Report Type: 
  Country: US (occurrence: US)
  Receive Date: 20121102
  Receipt Date: 20121102
  Transmission Date: 20130627
  Serious: No
  Sender: FDA-Public Use
  Company Number: US-ASTRAZENECA-2011SE74078

PATIENT
  Age: 19207 Day
  Sex: Female
  Weight: 72.6 kg

DRUGS (1)
  1. CRESTOR [Suspect]
     Indication: LOW DENSITY LIPOPROTEIN INCREASED
     Route: 048
     Dates: start: 20111012, end: 20111012

REACTIONS (1)
  - Chest pain [Recovered/Resolved]
